FAERS Safety Report 9171603 (Version 1)
Quarter: 2013Q1

REPORT INFORMATION
  Report Type: Spontaneous
  Country: US (occurrence: None)
  Receive Date: 20130131
  Receipt Date: 20130131
  Transmission Date: 20140127
  Serious: Yes (Hospitalization, Other)
  Sender: FDA-Public Use
  Company Number: 2013PROUSA02493

PATIENT
  Age: 84 Year
  Sex: Male
  Weight: 99.4 kg

DRUGS (17)
  1. PROVENGE (SIPULEUCEL-T) SUSPENSION, 250ML [Suspect]
     Dosage: 250 ML, SINGLE, INTRAVENOUS
     Route: 042
     Dates: start: 20121105, end: 20121105
  2. ADVAIR (FLUTICASONE PROPIONATE, SALMETEROL XINAFOATE) [Concomitant]
  3. TYLENOL PM (DIPHENHYDRAMINE HYDROCHLORIDE, PARACETAMOL) [Concomitant]
  4. TYLENOL (PARACETAMOL) [Concomitant]
  5. FISH OIL (FISH OIL) [Concomitant]
  6. SINEMET (CARBIDOPA, LEVODOPA) [Concomitant]
  7. COLACE (DOCUSATE SODIUM) [Concomitant]
  8. CARDIZEM (DILTIAZEM HYDROCHLORIDE) [Concomitant]
  9. CALCIUM WITH VITAMIN D (CALCIUM CARBONATE, COLECALCIFEROL) [Concomitant]
  10. FLUCONAZOLE (FLUCONAZOLE) [Concomitant]
  11. ASTELIN (AZELASTINE HYDROCHLORIDE) [Concomitant]
  12. MULTIVITAMIN (VITAMINS NOS) [Concomitant]
  13. DETROL LA (TOLTERODINE L-TARTRATE) [Concomitant]
  14. LASIX (FUROSEMIDE) [Concomitant]
  15. SIMVASTATIN (SIMVASTATIN) [Concomitant]
  16. XARELTO (RIVAROXABAN) [Concomitant]
  17. PERCOCET [Concomitant]

REACTIONS (4)
  - Peptic ulcer [None]
  - Haematochezia [None]
  - Anaemia [None]
  - Large intestine polyp [None]
